FAERS Safety Report 17193939 (Version 1)
Quarter: 2019Q4

REPORT INFORMATION
  Report Type: Spontaneous
  Country: SE (occurrence: SE)
  Receive Date: 20191223
  Receipt Date: 20191223
  Transmission Date: 20200122
  Serious: Yes (Hospitalization)
  Sender: FDA-Public Use
  Company Number: SE-JNJFOC-20191229318

PATIENT
  Age: 20 Year
  Sex: Female

DRUGS (7)
  1. EQUASYM DEPOT [Concomitant]
     Active Substance: METHYLPHENIDATE HYDROCHLORIDE
     Indication: PRODUCT USED FOR UNKNOWN INDICATION
     Dosage: ^20^
     Route: 065
  2. NALTREXONE [Concomitant]
     Active Substance: NALTREXONE
     Indication: PRODUCT USED FOR UNKNOWN INDICATION
     Route: 065
  3. IPREN TABLETS 400MG PR-009217 [Suspect]
     Active Substance: IBUPROFEN
     Indication: PRODUCT USED FOR UNKNOWN INDICATION
     Dosage: 5 IPREN 400 MG; IN TOTAL
     Route: 048
     Dates: start: 20190217, end: 20190217
  4. PROPAVAN [Suspect]
     Active Substance: PROPIOMAZINE
     Indication: PRODUCT USED FOR UNKNOWN INDICATION
     Dosage: 20 PROPAVAN 25 MG; IN TOTAL
     Route: 048
     Dates: start: 20190217, end: 20190217
  5. DULOXETINE. [Suspect]
     Active Substance: DULOXETINE
     Indication: PRODUCT USED FOR UNKNOWN INDICATION
     Dosage: 13 DULOXETIN 30 MG; IN TOTAL
     Route: 048
     Dates: start: 20190217, end: 20190217
  6. NIPAXON (NOSCAPINE HYDROCHLORIDE) [Suspect]
     Active Substance: NOSCAPINE HYDROCHLORIDE
     Indication: PRODUCT USED FOR UNKNOWN INDICATION
     Dosage: 12 NIPAXON 50 MG; IN TOTAL
     Route: 048
     Dates: start: 20190217, end: 20190217
  7. STRATTERA [Concomitant]
     Active Substance: ATOMOXETINE HYDROCHLORIDE
     Indication: PRODUCT USED FOR UNKNOWN INDICATION
     Dosage: ^20^
     Route: 065

REACTIONS (5)
  - Tachycardia [Unknown]
  - Intentional overdose [Unknown]
  - Intentional self-injury [Unknown]
  - Pupillary reflex impaired [Unknown]
  - Loss of consciousness [Unknown]

NARRATIVE: CASE EVENT DATE: 20190217
